FAERS Safety Report 16176476 (Version 1)
Quarter: 2019Q2

REPORT INFORMATION
  Report Type: Spontaneous
  Country: FR (occurrence: FR)
  Receive Date: 20190409
  Receipt Date: 20190409
  Transmission Date: 20190711
  Serious: Yes (Other)
  Sender: FDA-Public Use
  Company Number: FR-ASTRAZENECA-2019SE53704

PATIENT
  Age: 689 Month
  Sex: Female

DRUGS (5)
  1. LYNPARZA [Suspect]
     Active Substance: OLAPARIB
     Indication: OVARIAN CANCER
     Dosage: 4 CAPSULES ON MORNING AND EVENING
     Route: 048
  2. LYNPARZA [Suspect]
     Active Substance: OLAPARIB
     Indication: OVARIAN CANCER
     Dosage: 6 CAPSULES ON MORNING AND 6 ON EVENING
     Route: 048
  3. LYNPARZA [Suspect]
     Active Substance: OLAPARIB
     Indication: OVARIAN CANCER
     Dosage: 4 CAPSULES ON MORNING AND 4 CAPSULES ON EVENING
     Route: 048
     Dates: start: 201809
  4. LYNPARZA [Suspect]
     Active Substance: OLAPARIB
     Indication: OVARIAN CANCER
     Dosage: 600 MG DAILY (6 CAPSULES ON MORNING AND 6 CAPSULES ON EVENING)
     Route: 048
  5. LYNPARZA [Suspect]
     Active Substance: OLAPARIB
     Indication: OVARIAN CANCER
     Dosage: 8 CAPSULES TWICE DAILY
     Route: 048

REACTIONS (13)
  - Dizziness [Unknown]
  - Back pain [Unknown]
  - Product storage error [Unknown]
  - Memory impairment [Unknown]
  - Treatment noncompliance [Unknown]
  - Chills [Unknown]
  - Nausea [Unknown]
  - Fatigue [Unknown]
  - Off label use [Unknown]
  - Pain [Unknown]
  - Neck pain [Unknown]
  - Headache [Unknown]
  - Night sweats [Unknown]

NARRATIVE: CASE EVENT DATE: 201809
